FAERS Safety Report 11654330 (Version 2)
Quarter: 2015Q4

REPORT INFORMATION
  Report Type: Report from Study
  Country: AU (occurrence: AU)
  Receive Date: 20151023
  Receipt Date: 20151203
  Transmission Date: 20160304
  Serious: Yes (Life-Threatening, Hospitalization)
  Sender: FDA-Public Use
  Company Number: AU-ROCHE-1648585

PATIENT
  Age: 50 Year
  Sex: Female

DRUGS (1)
  1. ACTEMRA [Suspect]
     Active Substance: TOCILIZUMAB
     Indication: RHEUMATOID ARTHRITIS
     Route: 042
     Dates: start: 20100224, end: 20151106

REACTIONS (7)
  - Neutropenia [Unknown]
  - Intestinal dilatation [Not Recovered/Not Resolved]
  - Acute kidney injury [Not Recovered/Not Resolved]
  - Ileus [Not Recovered/Not Resolved]
  - Lactic acidosis [Not Recovered/Not Resolved]
  - Septic shock [Not Recovered/Not Resolved]
  - Sepsis [Unknown]

NARRATIVE: CASE EVENT DATE: 20151017
